FAERS Safety Report 4905957-8 (Version None)
Quarter: 2006Q1

REPORT INFORMATION
  Report Type: 
  Country: None (occurrence: None)
  Receive Date: 20060206
  Receipt Date: 20060124
  Transmission Date: 20060701
  Serious: Yes (Other)
  Sender: FDA-Public Use
  Company Number: 2006012743

PATIENT
  Age: 80 Year
  Sex: Female
  Weight: 56.246 kg

DRUGS (1)
  1. CELEBREX [Suspect]
     Indication: ILL-DEFINED DISORDER
     Dates: end: 20050101

REACTIONS (4)
  - ABNORMAL BEHAVIOUR [None]
  - MOVEMENT DISORDER [None]
  - PRURITUS [None]
  - RASH [None]
